FAERS Safety Report 7544861-6 (Version None)
Quarter: 2011Q2

REPORT INFORMATION
  Report Type: 
  Country: None (occurrence: None)
  Receive Date: 20110614
  Receipt Date: 20110513
  Transmission Date: 20111010
  Serious: Yes (Hospitalization, Other)
  Sender: FDA-Public Use
  Company Number: US-BAYER-2010-003132

PATIENT
  Age: 19 Year
  Sex: Female
  Weight: 71.655 kg

DRUGS (5)
  1. YAZ [Suspect]
     Indication: ORAL CONTRACEPTION
     Dosage: UNK UNK, QD
     Route: 048
     Dates: start: 20080801
  2. IBUPROFEN [Concomitant]
  3. YAZ [Suspect]
     Indication: ACNE
  4. ONE A DAY [Concomitant]
     Indication: MEDICAL DIET
  5. ASCORBIC ACID [Concomitant]
     Indication: UNEVALUABLE EVENT
     Dosage: UNK UNK, QD

REACTIONS (7)
  - CHOLECYSTITIS [None]
  - ABDOMINAL PAIN [None]
  - VOMITING [None]
  - EMOTIONAL DISTRESS [None]
  - CHOLELITHIASIS [None]
  - NAUSEA [None]
  - PSYCHIATRIC SYMPTOM [None]
